FAERS Safety Report 9847186 (Version 2)
Quarter: 2014Q1

REPORT INFORMATION
  Report Type: Report from Study
  Country: GB (occurrence: GB)
  Receive Date: 20140127
  Receipt Date: 20140127
  Transmission Date: 20141002
  Serious: Yes (Life-Threatening, Hospitalization)
  Sender: FDA-Public Use
  Company Number: GB-B.I. PHARMACEUTICALS,INC./RIDGEFIELD-2013-BI-36535GD

PATIENT
  Sex: 0

DRUGS (2)
  1. ATROVENT [Suspect]
     Indication: ASTHMA
     Dosage: 0.75 MG
     Route: 055
  2. SALBUTAMOL [Suspect]
     Indication: ASTHMA
     Dosage: 2.5 MG (FOR THOSE AGED 2-5 YEARS) OR 5 MG (FOR THOSE AGED 6 YEARS OR OLDER)
     Route: 055

REACTIONS (4)
  - Bronchospasm [Recovered/Resolved]
  - Oxygen saturation decreased [Recovered/Resolved]
  - Cyanosis [Recovered/Resolved]
  - Wheezing [Recovered/Resolved]
